FAERS Safety Report 5310663-4 (Version None)
Quarter: 2007Q2

REPORT INFORMATION
  Report Type: 
  Country: None (occurrence: None)
  Receive Date: 20070428
  Receipt Date: 20070417
  Transmission Date: 20071010
  Serious: Yes (Other)
  Sender: FDA-Public Use
  Company Number: US-PFIZER INC-2007031343

PATIENT
  Sex: Female
  Weight: 103.4 kg

DRUGS (2)
  1. CHANTIX [Suspect]
     Indication: SMOKING CESSATION THERAPY
     Route: 048
     Dates: start: 20070101, end: 20070405
  2. HYDROCHLOROTHIAZIDE [Concomitant]

REACTIONS (6)
  - ANXIETY [None]
  - DYSPHAGIA [None]
  - DYSPNOEA [None]
  - HYPERSENSITIVITY [None]
  - PANIC ATTACK [None]
  - TONGUE DISORDER [None]
